FAERS Safety Report 6700607-2 (Version None)
Quarter: 2010Q2

REPORT INFORMATION
  Report Type: 
  Country: None (occurrence: None)
  Receive Date: 20100426
  Receipt Date: 20100413
  Transmission Date: 20101027
  Serious: Yes (Death, Hospitalization)
  Sender: FDA-Public Use
  Company Number: A0621978C

PATIENT
  Sex: Female
  Weight: 61.8706 kg

DRUGS (5)
  1. VOTRIENT [Suspect]
     Indication: RENAL CELL CARCINOMA
     Dosage: 800 MG / PER DAY / ORAL
     Route: 048
     Dates: start: 20060922
  2. PHENSEDYL [Concomitant]
  3. METOCLOPRAMIDE HCL [Concomitant]
  4. DOLOGESIC [Concomitant]
  5. CHLORPHENIRAMINE MALEATE [Concomitant]

REACTIONS (16)
  - ATELECTASIS [None]
  - BACK PAIN [None]
  - BLOOD PRESSURE DECREASED [None]
  - BLOOD SODIUM DECREASED [None]
  - DYSPNOEA [None]
  - HAEMATOMA [None]
  - HAEMOGLOBIN DECREASED [None]
  - HEPATIC FUNCTION ABNORMAL [None]
  - HILAR LYMPHADENOPATHY [None]
  - LYMPHADENOPATHY MEDIASTINAL [None]
  - METASTASES TO LUNG [None]
  - OEDEMA PERIPHERAL [None]
  - OLIGURIA [None]
  - PLEURAL EFFUSION [None]
  - RENAL IMPAIRMENT [None]
  - VENOUS PRESSURE JUGULAR INCREASED [None]
